FAERS Safety Report 13188881 (Version 1)
Quarter: 2017Q1

REPORT INFORMATION
  Report Type: Spontaneous
  Country: US (occurrence: US)
  Receive Date: 20170206
  Receipt Date: 20170206
  Transmission Date: 20170428
  Serious: No
  Sender: FDA-Public Use
  Company Number: US-GLAXOSMITHKLINE-US2017014973

PATIENT
  Age: 12 Year
  Sex: Female

DRUGS (1)
  1. TRANSDERM SCOP [Suspect]
     Active Substance: SCOPOLAMINE
     Indication: AUTONOMIC NERVOUS SYSTEM IMBALANCE
     Dosage: UNK
     Dates: start: 20170126

REACTIONS (5)
  - Erythema [Not Recovered/Not Resolved]
  - Swelling face [Recovered/Resolved]
  - Drug hypersensitivity [Not Recovered/Not Resolved]
  - Off label use [Unknown]
  - Eye swelling [Recovered/Resolved]

NARRATIVE: CASE EVENT DATE: 20170130
